FAERS Safety Report 12242644 (Version 2)
Quarter: 2017Q3

REPORT INFORMATION
  Report Type: Spontaneous
  Country: US (occurrence: US)
  Receive Date: 20160406
  Receipt Date: 20170714
  Transmission Date: 20171127
  Serious: Yes (Life-Threatening, Hospitalization)
  Sender: FDA-Public Use
  Company Number: US-JNJFOC-20160400861

PATIENT
  Age: 54 Year
  Sex: Male
  Weight: 81.8 kg

DRUGS (8)
  1. INVOKANA [Suspect]
     Active Substance: CANAGLIFLOZIN
     Indication: TYPE 2 DIABETES MELLITUS
     Route: 048
     Dates: start: 20140623, end: 20150219
  2. HUMALOG [Suspect]
     Active Substance: INSULIN LISPRO
     Indication: PRODUCT USED FOR UNKNOWN INDICATION
     Dosage: 100 UNIT/ML
     Route: 065
     Dates: start: 2010, end: 2015
  3. GABAPENTIN. [Concomitant]
     Active Substance: GABAPENTIN
     Indication: NEUROPATHY PERIPHERAL
     Route: 065
     Dates: start: 2015
  4. VITAMIN D [Concomitant]
     Active Substance: CHOLECALCIFEROL
     Indication: VITAMIN SUPPLEMENTATION
     Route: 065
     Dates: start: 2014
  5. HUMALOG [Suspect]
     Active Substance: INSULIN LISPRO
     Indication: PRODUCT USED FOR UNKNOWN INDICATION
     Dosage: 50 UNITS
     Route: 065
     Dates: start: 2015, end: 2016
  6. HUMALOG [Suspect]
     Active Substance: INSULIN LISPRO
     Indication: PRODUCT USED FOR UNKNOWN INDICATION
     Dosage: 15 UNITS
     Route: 065
     Dates: start: 2017
  7. LEVEMIR [Suspect]
     Active Substance: INSULIN DETEMIR
     Indication: PRODUCT USED FOR UNKNOWN INDICATION
     Dosage: 100 UNITS
     Route: 065
     Dates: start: 2007, end: 2015
  8. FISH OIL [Concomitant]
     Active Substance: FISH OIL
     Indication: FATTY ACID DEFICIENCY
     Dosage: 2400 UNITS
     Route: 065
     Dates: start: 2014

REACTIONS (4)
  - Acute kidney injury [Recovered/Resolved]
  - Acute respiratory failure [Recovering/Resolving]
  - Diabetic ketoacidosis [Recovered/Resolved]
  - Metabolic encephalopathy [Recovered/Resolved]

NARRATIVE: CASE EVENT DATE: 20150210
